FAERS Safety Report 6561271-9 (Version None)
Quarter: 2010Q1

REPORT INFORMATION
  Report Type: 
  Country: None (occurrence: None)
  Receive Date: 20100130
  Receipt Date: 20091013
  Transmission Date: 20100710
  Serious: Yes (Other)
  Sender: FDA-Public Use
  Company Number: US-ABBOTT-09P-163-0602578-00

PATIENT
  Sex: Female
  Weight: 59.02 kg

DRUGS (8)
  1. HUMIRA [Suspect]
     Indication: RHEUMATOID ARTHRITIS
     Dates: start: 20071009, end: 20090927
  2. PLAQUENIL [Concomitant]
     Indication: RHEUMATOID ARTHRITIS
  3. FLEXERIL [Concomitant]
     Indication: MUSCLE SPASMS
  4. FLEXERIL [Concomitant]
     Indication: MUSCLE TIGHTNESS
  5. ALDACTONE [Concomitant]
     Indication: FLUID RETENTION
  6. VIVELLE-DOT [Concomitant]
     Indication: HYSTERECTOMY
     Dosage: PATCH
  7. XANAX [Concomitant]
     Indication: ANXIETY
  8. UNKNOWN ALLERGY MEDICATION [Concomitant]
     Indication: HYPERSENSITIVITY

REACTIONS (1)
  - SQUAMOUS CELL CARCINOMA [None]
